FAERS Safety Report 7396683-7 (Version None)
Quarter: 2011Q2

REPORT INFORMATION
  Report Type: 
  Country: None (occurrence: None)
  Receive Date: 20110406
  Receipt Date: 20100325
  Transmission Date: 20111010
  Serious: Yes (Life-Threatening, Hospitalization, Other)
  Sender: FDA-Public Use
  Company Number: US-BAYER-200943210NA

PATIENT
  Sex: Female
  Weight: 56.29 kg

DRUGS (11)
  1. SORAFENIB (RAF KINASE INHIBITOR) [Suspect]
     Indication: HEPATIC NEOPLASM MALIGNANT
     Route: 048
     Dates: start: 20090921, end: 20091124
  2. CIPROFLOXACIN HCL [Concomitant]
     Indication: URINARY TRACT INFECTION
     Route: 048
  3. SORAFENIB (RAF KINASE INHIBITOR) [Suspect]
     Route: 048
     Dates: start: 20091125, end: 20091215
  4. CANDESARTAN CILEXETIL [Concomitant]
     Dosage: ONE TABLET DAILY  (ON HOLD)
     Route: 048
  5. ASPIRIN [Concomitant]
     Route: 048
  6. ASCORBIC ACID [Concomitant]
     Route: 048
  7. LEVAQUIN [Concomitant]
     Indication: URINARY TRACT INFECTION
  8. LANSOPRAZOLE [Concomitant]
     Dosage: ORALLY DISINTEGRATING TAKES AT 6 AM
     Route: 048
  9. MAGNESIUM [Concomitant]
  10. MAGNESIUM [Concomitant]
  11. HYDROCHLOROTHIAZIDE [Concomitant]
     Route: 048

REACTIONS (4)
  - FATIGUE [None]
  - PLEURAL EFFUSION [None]
  - HYPOKALAEMIA [None]
  - ASCITES [None]
